FAERS Safety Report 21026825 (Version 6)
Quarter: 2022Q4

REPORT INFORMATION
  Report Type: Report from Study
  Country: KR (occurrence: KR)
  Receive Date: 20220630
  Receipt Date: 20221117
  Transmission Date: 20230113
  Serious: Yes (Hospitalization, Other)
  Sender: FDA-Public Use
  Company Number: KR-BRISTOL-MYERS SQUIBB COMPANY-2022-064978

PATIENT
  Age: 75 Year
  Sex: Female
  Weight: 61 kg

DRUGS (13)
  1. FEDRATINIB [Suspect]
     Active Substance: FEDRATINIB
     Indication: Primary myelofibrosis
     Route: 048
     Dates: start: 20210713, end: 20220623
  2. AMLODIPINE [Concomitant]
     Active Substance: AMLODIPINE BESYLATE
     Indication: Hypertension
     Route: 048
     Dates: start: 2011, end: 20220625
  3. EZETIMIBE [Concomitant]
     Active Substance: EZETIMIBE
     Indication: Hyperlipidaemia
     Route: 048
     Dates: start: 2011, end: 20220627
  4. LINAGLIPTIN [Concomitant]
     Active Substance: LINAGLIPTIN
     Indication: Diabetes mellitus
     Route: 048
     Dates: start: 2011, end: 20220625
  5. METFORMIN [Concomitant]
     Active Substance: METFORMIN HYDROCHLORIDE
     Indication: Diabetes mellitus
     Route: 048
     Dates: start: 2011, end: 20220625
  6. ROSUVASTATIN [Concomitant]
     Active Substance: ROSUVASTATIN
     Indication: Hyperlipidaemia
     Route: 048
     Dates: start: 2011, end: 20220627
  7. TELMISARTAN [Concomitant]
     Active Substance: TELMISARTAN
     Indication: Hypertension
     Route: 048
     Dates: start: 2011, end: 20220625
  8. CALCIUM POLYSTYRENE SULFONATE [Concomitant]
     Active Substance: CALCIUM POLYSTYRENE SULFONATE
     Indication: Hyperkalaemia
     Route: 048
     Dates: start: 20220517, end: 20220613
  9. THIAMINE [Concomitant]
     Active Substance: THIAMINE
     Indication: Supplementation therapy
     Route: 048
     Dates: start: 20211005, end: 20220623
  10. URSODIOL [Concomitant]
     Active Substance: URSODIOL
     Indication: Prophylaxis
     Route: 048
     Dates: start: 20220517, end: 20220613
  11. ALVOGEN REBAMIPIDE TAB (REBAMIPIDE 100MG) [Concomitant]
     Indication: Dyspepsia
     Route: 048
     Dates: start: 20220623, end: 20220623
  12. HERBALS [Concomitant]
     Active Substance: HERBALS
     Indication: Dyspepsia
     Route: 048
     Dates: start: 20220623, end: 20220623
  13. RABIET TAB (RABEPRAZOLE SODIUM 10MG) [Concomitant]
     Indication: Dyspepsia
     Route: 048
     Dates: start: 20220623, end: 20220623

REACTIONS (1)
  - Acute kidney injury [Recovered/Resolved]

NARRATIVE: CASE EVENT DATE: 20220624
